FAERS Safety Report 21166638 (Version 1)
Quarter: 2022Q3

REPORT INFORMATION
  Report Type: Spontaneous
  Country: US (occurrence: None)
  Receive Date: 20220802
  Receipt Date: 20220802
  Transmission Date: 20221026
  Serious: Yes (Other)
  Sender: FDA-Public Use
  Company Number: None

PATIENT
  Age: 71 Year
  Sex: Male

DRUGS (10)
  1. AMBRISENTAN [Suspect]
     Active Substance: AMBRISENTAN
     Indication: Pulmonary arterial hypertension
     Dosage: FREQUENCY : DAILY;?
     Route: 048
     Dates: start: 20220204
  2. TADALAFIL [Concomitant]
     Active Substance: TADALAFIL
  3. LASIX [Concomitant]
     Active Substance: FUROSEMIDE
  4. CLONAZEPAM [Concomitant]
     Active Substance: CLONAZEPAM
  5. METOPROLOL [Concomitant]
     Active Substance: METOPROLOL
  6. METOPROLOL [Concomitant]
     Active Substance: METOPROLOL
  7. PRADAXA [Concomitant]
     Active Substance: DABIGATRAN ETEXILATE MESYLATE
  8. FLOMAX [Concomitant]
     Active Substance: TAMSULOSIN HYDROCHLORIDE
  9. PEPCID [Concomitant]
     Active Substance: FAMOTIDINE
  10. LORATADINE [Concomitant]
     Active Substance: LORATADINE

REACTIONS (3)
  - Pulmonary oedema [None]
  - Syncope [None]
  - Weight increased [None]

NARRATIVE: CASE EVENT DATE: 20220714
